FAERS Safety Report 9077925 (Version 1)
Quarter: 2013Q1

REPORT INFORMATION
  Report Type: Report from Study
  Country: None (occurrence: US)
  Receive Date: 20130130
  Receipt Date: 20130130
  Transmission Date: 20140127
  Serious: No
  Sender: FDA-Public Use
  Company Number: US-ABBOTT-12P-163-0974048-00

PATIENT
  Age: 13 Year
  Sex: Male

DRUGS (4)
  1. HUMIRA 40 MG/0.8 ML PEN [Suspect]
     Indication: CROHN^S DISEASE
     Dosage: DAY 1
     Dates: start: 201208, end: 201208
  2. HUMIRA 40 MG/0.8 ML PEN [Suspect]
     Dosage: 2 WEEKS LATER
  3. HUMIRA 40 MG/0.8 ML PEN [Suspect]
  4. FLAGYL [Concomitant]
     Indication: CLOSTRIDIAL INFECTION
     Route: 048

REACTIONS (1)
  - Injection site pain [Not Recovered/Not Resolved]
